FAERS Safety Report 4404443-1 (Version None)
Quarter: 2004Q3

REPORT INFORMATION
  Report Type: 
  Country: None (occurrence: None)
  Receive Date: 20040720
  Receipt Date: 20040707
  Transmission Date: 20050211
  Serious: Yes (Hospitalization, Other)
  Sender: FDA-Public Use
  Company Number: US-JNJFOC-20031100788

PATIENT
  Age: 77 Year
  Sex: Male
  Weight: 80.2867 kg

DRUGS (30)
  1. REMICADE [Suspect]
     Indication: RHEUMATOID ARTHRITIS
     Dosage: SEE IMAGE
     Route: 042
     Dates: start: 20021031
  2. REMICADE [Suspect]
     Indication: RHEUMATOID ARTHRITIS
     Dosage: SEE IMAGE
     Route: 042
     Dates: start: 20021112
  3. REMICADE [Suspect]
     Indication: RHEUMATOID ARTHRITIS
     Dosage: SEE IMAGE
     Route: 042
     Dates: start: 20021201
  4. MORPHINE [Suspect]
     Indication: PAIN
  5. PHENERGAN [Suspect]
     Indication: DRUG USE FOR UNKNOWN INDICATION
  6. OXYCONTIN [Suspect]
     Indication: PAIN
  7. LIPITOR [Concomitant]
  8. MIACALCIN [Concomitant]
  9. BUMEX [Concomitant]
  10. SODIUM CHLORIDE [Concomitant]
  11. FOLIC ACID [Concomitant]
  12. LOTENSIN (BENZAPERIL HYDROCHLORIDE) [Concomitant]
  13. FLOMAX [Concomitant]
  14. OXYCONTIN [Concomitant]
  15. NORVASC [Concomitant]
  16. HYDROCODONE BITARTRATE [Concomitant]
  17. PREDNISONE TAB [Concomitant]
  18. CALTRATE (CALCIUM CARBONATE) [Concomitant]
  19. PLAQUENIL [Concomitant]
  20. MAGIC MOUTH WASH (ANTISEPTICS) [Concomitant]
  21. MECLIZINE [Concomitant]
  22. FLOMAX [Concomitant]
  23. ALLEGRA [Concomitant]
  24. FOLIC ACID [Concomitant]
  25. CALTRATE (CALCIUM CARBONATE) [Concomitant]
  26. NEOSPORIN (NEOSPORIN POWDER) [Concomitant]
  27. VIOXX [Concomitant]
  28. CELEBREX [Concomitant]
  29. MOTRIN [Concomitant]
  30. PREDNISONE TAB [Concomitant]

REACTIONS (17)
  - ANHEDONIA [None]
  - AORTIC DILATATION [None]
  - CANDIDURIA [None]
  - DIARRHOEA [None]
  - DIFFICULTY IN WALKING [None]
  - ERYTHEMA [None]
  - INJURY [None]
  - JOINT DISLOCATION [None]
  - PAIN [None]
  - PLEURAL EFFUSION [None]
  - PNEUMONITIS [None]
  - RENAL ATROPHY [None]
  - SKIN LACERATION [None]
  - SPINAL COMPRESSION FRACTURE [None]
  - TUBERCULOSIS [None]
  - UPPER RESPIRATORY TRACT INFECTION [None]
  - URINARY TRACT INFECTION [None]
